FAERS Safety Report 5584731-6 (Version None)
Quarter: 2008Q1

REPORT INFORMATION
  Report Type: 
  Country: None (occurrence: None)
  Receive Date: 20080103
  Receipt Date: 20071219
  Transmission Date: 20080703
  Serious: Yes (Other)
  Sender: FDA-Public Use
  Company Number: 2007-02464

PATIENT
  Age: 66 Year
  Sex: Male
  Weight: 67 kg

DRUGS (12)
  1. VELCADE [Suspect]
     Indication: MULTIPLE MYELOMA
     Dosage: 2.00 MG, INTRAVENOUS : 1.30 MG/M2, INTRAVENOUS
     Route: 042
     Dates: start: 20070306, end: 20070406
  2. VELCADE [Suspect]
     Indication: MULTIPLE MYELOMA
     Dosage: 2.00 MG, INTRAVENOUS : 1.30 MG/M2, INTRAVENOUS
     Route: 042
     Dates: start: 20070720, end: 20070720
  3. DECADRON [Suspect]
     Indication: MULTIPLE MYELOMA
     Dosage: 20.00 MG, INTRAVENOUS
     Route: 042
     Dates: start: 20070306, end: 20070407
  4. LEVOFLOXACIN [Concomitant]
  5. BAKTAR (SULFAMETHOXAZOLE, TRIMETHOPRIM) [Concomitant]
  6. LAXOBERON (SODIUM PICOSULFATE) [Concomitant]
  7. SENNOSIDE A [Concomitant]
  8. PANTOSIN (PANTETHINE) [Concomitant]
  9. PLATELETS [Concomitant]
  10. RED BLOOD CELLS [Concomitant]
  11. LASIX [Concomitant]
  12. ALDACTONE [Concomitant]

REACTIONS (19)
  - ALANINE AMINOTRANSFERASE INCREASED [None]
  - ANAEMIA [None]
  - BLOOD LACTATE DEHYDROGENASE INCREASED [None]
  - CONSTIPATION [None]
  - DISEASE PROGRESSION [None]
  - ENTEROCOLITIS [None]
  - HYPOAESTHESIA [None]
  - LYMPHOCYTE COUNT DECREASED [None]
  - MALIGNANT NEOPLASM PROGRESSION [None]
  - MULTIPLE MYELOMA [None]
  - NEUTROPHIL COUNT DECREASED [None]
  - OEDEMA [None]
  - ORAL HERPES [None]
  - PLATELET COUNT DECREASED [None]
  - PNEUMONIA [None]
  - PROTEIN TOTAL DECREASED [None]
  - PURPURA [None]
  - TREATMENT FAILURE [None]
  - WHITE BLOOD CELL COUNT DECREASED [None]
